FAERS Safety Report 14739458 (Version 2)
Quarter: 2018Q2

REPORT INFORMATION
  Report Type: Spontaneous
  Country: DK (occurrence: DK)
  Receive Date: 20180410
  Receipt Date: 20180620
  Transmission Date: 20180711
  Serious: Yes (Other)
  Sender: FDA-Public Use
  Company Number: DK-ASTELLAS-2018US016639

PATIENT
  Age: 79 Year
  Sex: Male

DRUGS (11)
  1. XTANDI [Suspect]
     Active Substance: ENZALUTAMIDE
     Indication: HORMONE-REFRACTORY PROSTATE CANCER
     Dosage: 160 MG (4 PCS OF 40 MG), ONCE DAILY
     Route: 048
     Dates: start: 20180228, end: 20180321
  2. BRICANYL [Concomitant]
     Active Substance: TERBUTALINE SULFATE
     Indication: PRODUCT USED FOR UNKNOWN INDICATION
     Dosage: 0.5 MG, UNKNOWN FREQ. INHALATION (TAKEN FOR 5 YEARS)
     Route: 055
  3. ONBREZ BREEZHALER [Concomitant]
     Active Substance: INDACATEROL
     Indication: PRODUCT USED FOR UNKNOWN INDICATION
     Dosage: 150 ?G, TWICE DAILY (TAKEN FOR 2 YEARS)
     Route: 065
  4. DOLOL [Concomitant]
     Active Substance: TRAMADOL
     Indication: PRODUCT USED FOR UNKNOWN INDICATION
     Dosage: 50 MG, 4 TIMES DAILY (TAKEN FOR ABOUT 9 YEARS)
     Route: 065
  5. MAGNESIA                           /00123201/ [Concomitant]
     Active Substance: MAGNESIUM HYDROXIDE
     Indication: PRODUCT USED FOR UNKNOWN INDICATION
     Dosage: 500 MG, TWICE DAILY (TAKEN FOR 3 YEARS)
     Route: 065
  6. MONTELUCAST [Concomitant]
     Active Substance: MONTELUKAST SODIUM
     Indication: PRODUCT USED FOR UNKNOWN INDICATION
     Dosage: 10 MG, ONCE DAILY (IN THE EVENING) (TAKEN FOR TWO YEARS)
     Route: 065
  7. BALDRIAN                           /01561601/ [Concomitant]
     Indication: PRODUCT USED FOR UNKNOWN INDICATION
     Dosage: 300 MG, TWICE DAILY (IN THE EVENING)
     Route: 065
  8. FEXOFENADINE [Concomitant]
     Active Substance: FEXOFENADINE\FEXOFENADINE HYDROCHLORIDE
     Indication: PRODUCT USED FOR UNKNOWN INDICATION
     Dosage: 180 MG, AS NEEDED (FOR ABOUT 9 YEARS)
     Route: 065
  9. PROCREN [Concomitant]
     Active Substance: LEUPROLIDE ACETATE
     Indication: PROPHYLAXIS
     Dosage: UNK UNK, EVERY 3 MONTH, FOR 7 YEARS
     Route: 065
  10. ZOLPIDEM TARTRATE. [Concomitant]
     Active Substance: ZOLPIDEM TARTRATE
     Indication: PRODUCT USED FOR UNKNOWN INDICATION
     Dosage: 10 MG, AT BEDTIME TAKEN FOR ABOUT 7 YEARS
     Route: 065
  11. VITAMIN D3 [Concomitant]
     Active Substance: CHOLECALCIFEROL
     Indication: PRODUCT USED FOR UNKNOWN INDICATION
     Route: 065

REACTIONS (1)
  - Neovascular age-related macular degeneration [Not Recovered/Not Resolved]

NARRATIVE: CASE EVENT DATE: 201803
